FAERS Safety Report 24614016 (Version 3)
Quarter: 2024Q4

REPORT INFORMATION
  Report Type: Report from Study
  Country: CA (occurrence: CA)
  Receive Date: 20241113
  Receipt Date: 20241226
  Transmission Date: 20250115
  Serious: No
  Sender: TAKEDA
  Company Number: CA-TAKEDA-2024TUS098961

PATIENT
  Sex: Male

DRUGS (6)
  1. GLASSIA [Suspect]
     Active Substance: .ALPHA.1-PROTEINASE INHIBITOR HUMAN
     Indication: Alpha-1 antitrypsin deficiency
     Dosage: 9000 MILLIGRAM, 1/WEEK
     Dates: start: 20240829
  2. GLASSIA [Suspect]
     Active Substance: .ALPHA.1-PROTEINASE INHIBITOR HUMAN
     Dosage: UNK UNK, 1/WEEK
  3. GLASSIA [Suspect]
     Active Substance: .ALPHA.1-PROTEINASE INHIBITOR HUMAN
     Dosage: 9000 MILLIGRAM, 1/WEEK
  4. PROLASTIN [Concomitant]
     Active Substance: .ALPHA.1-PROTEINASE INHIBITOR HUMAN
     Dosage: UNK
  5. BREZTRI [Concomitant]
     Active Substance: BUDESONIDE\FORMOTEROL\GLYCOPYRROLATE
     Dosage: UNK UNK, BID
  6. CANNABIDIOL\HERBALS [Concomitant]
     Active Substance: CANNABIDIOL\HERBALS
     Indication: Sleep disorder
     Dosage: UNK

REACTIONS (1)
  - Blood pressure increased [Unknown]
